FAERS Safety Report 6634168-3 (Version None)
Quarter: 2010Q1

REPORT INFORMATION
  Report Type: 
  Country: None (occurrence: None)
  Receive Date: 20100310
  Receipt Date: 20100224
  Transmission Date: 20100710
  Serious: Yes (Hospitalization)
  Sender: FDA-Public Use
  Company Number: RU-1180951

PATIENT
  Age: 68 Year
  Sex: Female

DRUGS (3)
  1. MAXITROL [Suspect]
     Route: 047
     Dates: start: 20090101, end: 20090101
  2. MAXIDEX [Suspect]
     Indication: EYE DISORDER
     Route: 047
  3. BETOPTIC [Concomitant]

REACTIONS (4)
  - BLEPHAROSPASM [None]
  - DRUG HYPERSENSITIVITY [None]
  - DRY EYE [None]
  - SENSATION OF FOREIGN BODY [None]
